FAERS Safety Report 6202907-1 (Version None)
Quarter: 2009Q2

REPORT INFORMATION
  Report Type: 
  Country: None (occurrence: None)
  Receive Date: 20090526
  Receipt Date: 20090520
  Transmission Date: 20091009
  Serious: Yes (Hospitalization)
  Sender: FDA-Public Use
  Company Number: US-JNJCH-2009014141

PATIENT
  Age: 7 Year
  Sex: Male
  Weight: 22.7 kg

DRUGS (2)
  1. NEOSPORIN [Suspect]
     Indication: SKIN LACERATION
     Dosage: TEXT:A DAP ONCE
     Route: 061
     Dates: start: 20090515, end: 20090515
  2. OTHER ANTI-ASTHMATICS, INHALANTS [Concomitant]
     Indication: ASTHMA
     Dosage: TEXT:UNSPECIFIED
     Route: 055

REACTIONS (5)
  - APPLICATION SITE ERYTHEMA [None]
  - DRUG INEFFECTIVE [None]
  - GAIT DISTURBANCE [None]
  - INFECTION [None]
  - OEDEMA PERIPHERAL [None]
